FAERS Safety Report 24215789 (Version 2)
Quarter: 2025Q2

REPORT INFORMATION
  Report Type: Spontaneous
  Country: CA (occurrence: CA)
  Receive Date: 20240816
  Receipt Date: 20250513
  Transmission Date: 20250716
  Serious: Yes (Other)
  Sender: CELLTRION
  Company Number: CA-CELLTRION INC.-2024CA019433

PATIENT

DRUGS (6)
  1. YUFLYMA [Suspect]
     Active Substance: ADALIMUMAB-AATY
     Indication: Hidradenitis
  2. ARAZLO [Concomitant]
     Active Substance: TAZAROTENE
     Dates: start: 202307
  3. CEPHALEXIN [Concomitant]
     Active Substance: CEPHALEXIN
     Dates: start: 20240806
  4. EPURIS [Concomitant]
     Active Substance: ISOTRETINOIN
     Dates: start: 20240618
  5. ETHINYL ESTRADIOL\NORETHINDRONE ACETATE [Concomitant]
     Active Substance: ETHINYL ESTRADIOL\NORETHINDRONE ACETATE
     Dates: start: 20240618
  6. SOTALOL [Concomitant]
     Active Substance: SOTALOL
     Dates: start: 2019

REACTIONS (2)
  - Sweat gland excision [Recovered/Resolved]
  - Drug ineffective [Recovered/Resolved]

NARRATIVE: CASE EVENT DATE: 20240806
